FAERS Safety Report 12960535 (Version 1)
Quarter: 2016Q4

REPORT INFORMATION
  Report Type: Report from Study
  Country: ES (occurrence: ES)
  Receive Date: 20161121
  Receipt Date: 20161121
  Transmission Date: 20170207
  Serious: Yes (Hospitalization)
  Sender: FDA-Public Use
  Company Number: ES-BAYER-2016-215735

PATIENT
  Age: 82 Year
  Sex: Female

DRUGS (12)
  1. ADIRO 100 [Interacting]
     Active Substance: ASPIRIN
     Indication: SELF-MEDICATION
     Dosage: 100 MG, QD
     Route: 048
     Dates: start: 20140121
  2. ENALAPRIL [Concomitant]
     Active Substance: ENALAPRIL
     Indication: HYPERTENSION
     Dosage: 10 MG, QD
     Route: 048
     Dates: start: 20141230
  3. PRANDIN [REPAGLINIDE] [Concomitant]
     Indication: TYPE 2 DIABETES MELLITUS
     Dosage: .5 MG, TID
     Route: 048
     Dates: start: 20110914
  4. EUTIROX [Concomitant]
     Active Substance: LEVOTHYROXINE SODIUM
     Dosage: 25 ?G, UNK
     Route: 048
  5. RESINCALCIO [Concomitant]
     Active Substance: CALCIUM POLYSTYRENE SULFONATE
     Dosage: UNK
     Route: 048
     Dates: start: 20141230
  6. ALOPURINOL [Concomitant]
     Active Substance: ALLOPURINOL
     Indication: HYPERURICAEMIA
     Dosage: 100 MG, QD
     Route: 048
     Dates: start: 20130924
  7. FUROSEMIDA [Concomitant]
     Active Substance: FUROSEMIDE
     Indication: HYPERTENSION
     Dosage: UNK
     Route: 048
     Dates: start: 20130912
  8. OMEPRAZOL [Concomitant]
     Active Substance: OMEPRAZOLE
     Indication: PROPHYLAXIS AGAINST GASTROINTESTINAL ULCER
     Dosage: 20 MG, QD
     Route: 048
     Dates: start: 20140121
  9. ASPIRINA 500 MG TABLET , 10 TABLET [Suspect]
     Active Substance: ASPIRIN
     Indication: SELF-MEDICATION
     Dosage: 500 MG, QOD
     Route: 048
     Dates: start: 1995, end: 20150521
  10. ADIRO 100 [Interacting]
     Active Substance: ASPIRIN
     Indication: MYOCARDIAL ISCHAEMIA
     Dosage: 500 MG, Q72HR
     Route: 048
     Dates: start: 1995, end: 20150521
  11. GLYCOPYRRONIUM BROMIDE [Concomitant]
     Active Substance: GLYCOPYRRONIUM
     Indication: CHRONIC OBSTRUCTIVE PULMONARY DISEASE
     Dosage: UNK
     Route: 055
     Dates: start: 20130902
  12. EUTIROX [Concomitant]
     Active Substance: LEVOTHYROXINE SODIUM
     Dosage: 50 ?G, UNK
     Route: 048

REACTIONS (2)
  - Chronic gastritis [Recovered/Resolved]
  - Anaemia [Recovered/Resolved]

NARRATIVE: CASE EVENT DATE: 20150521
